FAERS Safety Report 8075477-3 (Version None)
Quarter: 2012Q1

REPORT INFORMATION
  Report Type: 
  Country: None (occurrence: None)
  Receive Date: 20120120
  Receipt Date: 20120105
  Transmission Date: 20120608
  Serious: Yes (Hospitalization, Other)
  Sender: FDA-Public Use
  Company Number: 2011-2302

PATIENT
  Age: 51 Year
  Sex: Female

DRUGS (1)
  1. SOMATULINE AUTOGEL (LANREOTIDE AUTOGEL) (LANREOTIDE) (LANREOTIDE) (LAN [Suspect]
     Indication: ACROMEGALY
     Dosage: 120 MG (120 MG, 1 IN 28 D), SUBCUTANEOUS
     Route: 058
     Dates: start: 20080718, end: 20111020

REACTIONS (8)
  - PERICARDITIS [None]
  - IMPAIRED WORK ABILITY [None]
  - PITUITARY TUMOUR BENIGN [None]
  - CHOLECYSTECTOMY [None]
  - DYSPNOEA [None]
  - VOMITING [None]
  - CHEST PAIN [None]
  - INFLUENZA LIKE ILLNESS [None]
